FAERS Safety Report 7044506-8 (Version None)
Quarter: 2010Q4

REPORT INFORMATION
  Report Type: 
  Country: None (occurrence: None)
  Receive Date: 20101014
  Receipt Date: 20101004
  Transmission Date: 20110411
  Serious: No
  Sender: FDA-Public Use
  Company Number: US-B.I. PHARMACEUTICALS,INC./RIDGEFIELD-2010-BP-11241BP

PATIENT
  Sex: Female

DRUGS (4)
  1. SPIRIVA [Suspect]
     Indication: EMPHYSEMA
     Dosage: 18 MCG
     Route: 055
     Dates: start: 20100801
  2. LACTASE [Suspect]
     Indication: CROHN'S DISEASE
     Dates: start: 20100301
  3. SYMBICORT [Concomitant]
     Indication: EMPHYSEMA
     Dates: start: 20100801
  4. BENEFIBER [Concomitant]
     Indication: CROHN'S DISEASE
     Dates: start: 20100301

REACTIONS (4)
  - ABDOMINAL DISTENSION [None]
  - ABDOMINAL PAIN UPPER [None]
  - FLATULENCE [None]
  - OEDEMA PERIPHERAL [None]
